FAERS Safety Report 13497351 (Version 3)
Quarter: 2017Q2

REPORT INFORMATION
  Report Type: Report from Study
  Country: US (occurrence: US)
  Receive Date: 20170428
  Receipt Date: 20170615
  Transmission Date: 20170830
  Serious: Yes (Hospitalization, Other)
  Sender: FDA-Public Use
  Company Number: US-ARIAD PHARMACEUTICALS, INC-2017US008119

PATIENT
  Age: 23 Year
  Sex: Male

DRUGS (2)
  1. ICLUSIG [Suspect]
     Active Substance: PONATINIB
     Dosage: 30 MG, QD
     Route: 048
  2. ICLUSIG [Suspect]
     Active Substance: PONATINIB
     Indication: CHRONIC MYELOID LEUKAEMIA
     Dosage: 30 MG, QD
     Route: 048
     Dates: start: 20170222

REACTIONS (13)
  - Dysphagia [Unknown]
  - Central venous catheterisation [Unknown]
  - Bone pain [Unknown]
  - Lung infiltration [Unknown]
  - Tooth infection [Unknown]
  - Blast crisis in myelogenous leukaemia [Unknown]
  - Pancytopenia [Unknown]
  - Pruritus [Unknown]
  - Abscess [Unknown]
  - Pyrexia [Unknown]
  - Abdominal pain [Unknown]
  - Neutropenia [Unknown]
  - Bone marrow transplant [Unknown]

NARRATIVE: CASE EVENT DATE: 20170301
